FAERS Safety Report 25941222 (Version 1)
Quarter: 2025Q4

REPORT INFORMATION
  Report Type: Report from Study
  Country: CN (occurrence: CN)
  Receive Date: 20251020
  Receipt Date: 20251020
  Transmission Date: 20260117
  Serious: Yes (Other)
  Sender: ROCHE
  Company Number: CN-ROCHE-10000411665

PATIENT

DRUGS (2)
  1. BEVACIZUMAB [Suspect]
     Active Substance: BEVACIZUMAB
     Indication: Colorectal cancer metastatic
     Dosage: ON THE FIRST DAY OF EACH TREATMENT CYCLE. A TREATMENT CYCLE OF 14 DAYS IS CONSIDERED.
     Route: 042
  2. TIPIRACIL HYDROCHLORIDE\TRIFLURIDINE [Suspect]
     Active Substance: TIPIRACIL HYDROCHLORIDE\TRIFLURIDINE
     Indication: Colorectal cancer metastatic
     Dosage: MORNING AND EVENING, FOR 5 CONSECUTIVE DAYS FOLLOWED BY 9 DAYS OF DISCONTINUATION. A TREATMENT CYCLE
     Route: 048

REACTIONS (15)
  - Neutropenia [Unknown]
  - Leukopenia [Unknown]
  - Thrombocytopenia [Unknown]
  - Anaemia [Unknown]
  - Blood bilirubin increased [Unknown]
  - Fatigue [Unknown]
  - Nausea [Unknown]
  - Hypoproteinaemia [Unknown]
  - Alanine aminotransferase increased [Unknown]
  - Aspartate aminotransferase increased [Unknown]
  - Blood creatinine increased [Unknown]
  - Hypertension [Unknown]
  - Proteinuria [Unknown]
  - Decreased appetite [Unknown]
  - Diarrhoea [Unknown]
